FAERS Safety Report 9056064 (Version 5)
Quarter: 2013Q3

REPORT INFORMATION
  Report Type: Spontaneous
  Country: FR (occurrence: FR)
  Receive Date: 20130205
  Receipt Date: 20130708
  Transmission Date: 20140515
  Serious: Yes (Death, Hospitalization, Other)
  Sender: FDA-Public Use
  Company Number: PHHY2013FR009465

PATIENT
  Age: 59 Year
  Sex: Female
  Weight: 68 kg

DRUGS (14)
  1. SANDOSTATINE LAR [Suspect]
     Indication: ACROMEGALY
     Dosage: 20 MG
     Route: 030
     Dates: start: 201207
  2. SANDOSTATINE LAR [Suspect]
     Dosage: 20 MG
     Route: 030
     Dates: start: 201208, end: 201209
  3. SANDOSTATINE LAR [Suspect]
     Dosage: 20 MG
     Route: 030
     Dates: start: 201212
  4. CRESTOR [Concomitant]
     Dosage: 10 MG, QD
     Route: 065
  5. COVERSYL [Concomitant]
     Dosage: 5 MG, QD
     Route: 065
  6. BIPRETERAX [Concomitant]
     Dosage: 5 MG / 1.25 MG DAILY
  7. KARDEGIC [Concomitant]
     Dosage: 160 MG, QD
     Route: 065
  8. LEXOMIL [Concomitant]
     Dosage: UNK UKN, UNK
  9. HAVLANE [Concomitant]
     Dosage: UNK UKN, UNK
     Route: 065
  10. DIFFU K [Concomitant]
     Dosage: UNK UKN, UNK
     Route: 065
  11. OMEPRAZOLE [Concomitant]
     Dosage: 20 MG, QD
  12. MOTILIUM [Concomitant]
     Dosage: UNK UKN, UNK
  13. IXPRIM [Concomitant]
     Dosage: 4 DF, QD
  14. CREON [Concomitant]
     Dosage: 6 DF, QD

REACTIONS (26)
  - Death [Fatal]
  - Decreased appetite [Unknown]
  - General physical health deterioration [Unknown]
  - Diverticulitis [Not Recovered/Not Resolved]
  - Hepatic function abnormal [Unknown]
  - Systemic inflammatory response syndrome [Unknown]
  - Hepatomegaly [Unknown]
  - Hepatic steatosis [Unknown]
  - Macrocytosis [Unknown]
  - Gamma-glutamyltransferase increased [Not Recovered/Not Resolved]
  - Alanine aminotransferase increased [Not Recovered/Not Resolved]
  - Aspartate aminotransferase increased [Not Recovered/Not Resolved]
  - Pancreatitis acute [Unknown]
  - Arrhythmia [Unknown]
  - Thirst [Unknown]
  - Pelvic pain [Unknown]
  - Insomnia [Unknown]
  - Cell death [Unknown]
  - Vomiting [Unknown]
  - Diarrhoea [Unknown]
  - Nausea [Unknown]
  - Cholestasis [Unknown]
  - Asthenia [Unknown]
  - Abdominal pain [Unknown]
  - Dehydration [Unknown]
  - Hypokalaemia [Unknown]
